FAERS Safety Report 6708169-0 (Version None)
Quarter: 2010Q2

REPORT INFORMATION
  Report Type: 
  Country: None (occurrence: None)
  Receive Date: 20100503
  Receipt Date: 20090630
  Transmission Date: 20101027
  Serious: No
  Sender: FDA-Public Use
  Company Number: US-ASTRAZENECA-2009UW18288

PATIENT
  Sex: Male
  Weight: 59.9 kg

DRUGS (4)
  1. NEXIUM [Suspect]
     Route: 048
     Dates: start: 20010101
  2. WELLBUTRIN [Concomitant]
  3. ZOLOFT [Concomitant]
  4. CLONOPIN [Concomitant]

REACTIONS (1)
  - DYSPEPSIA [None]
